FAERS Safety Report 25551763 (Version 1)
Quarter: 2025Q3

REPORT INFORMATION
  Report Type: Spontaneous
  Country: CA (occurrence: CA)
  Receive Date: 20250714
  Receipt Date: 20250714
  Transmission Date: 20251020
  Serious: Yes (Other)
  Sender: PURDUE
  Company Number: CA-PURDUE-USA-2025-0318892

PATIENT
  Age: 33 Year
  Sex: Female
  Weight: 75 kg

DRUGS (3)
  1. HYDROMORPHONE HYDROCHLORIDE [Suspect]
     Active Substance: HYDROMORPHONE HYDROCHLORIDE
     Indication: Pain
     Route: 042
  2. NUBAIN [Concomitant]
     Active Substance: NALBUPHINE HYDROCHLORIDE
     Indication: Product used for unknown indication
     Route: 030
  3. OXAZEPAM [Concomitant]
     Active Substance: OXAZEPAM
     Indication: Product used for unknown indication
     Route: 065

REACTIONS (6)
  - Accidental overdose [Recovered/Resolved]
  - Accidental poisoning [Recovered/Resolved]
  - Discomfort [Recovered/Resolved]
  - Dizziness [Recovered/Resolved]
  - Fatigue [Recovered/Resolved]
  - Somnolence [Recovered/Resolved]
